FAERS Safety Report 6584039-6 (Version None)
Quarter: 2010Q1

REPORT INFORMATION
  Report Type: 
  Country: None (occurrence: None)
  Receive Date: 20100216
  Receipt Date: 20091216
  Transmission Date: 20100710
  Serious: No
  Sender: FDA-Public Use
  Company Number: US-ABBOTT-09P-163-0615102-00

PATIENT
  Sex: Female
  Weight: 113.5 kg

DRUGS (17)
  1. SIMCOR [Suspect]
     Indication: BLOOD CHOLESTEROL INCREASED
     Dosage: 1 - 500/20MG TAB DAILY AT BEDTIME
     Dates: start: 20090101
  2. COQ10 [Concomitant]
     Indication: DRUG USE FOR UNKNOWN INDICATION
  3. LOVAZA [Concomitant]
     Indication: DRUG USE FOR UNKNOWN INDICATION
  4. MAGNESIUM [Concomitant]
     Indication: DRUG USE FOR UNKNOWN INDICATION
  5. VITAMIN C + E [Concomitant]
     Indication: DRUG USE FOR UNKNOWN INDICATION
  6. CALCIUM [Concomitant]
     Indication: DRUG USE FOR UNKNOWN INDICATION
  7. TOPAMAX [Concomitant]
     Indication: DRUG USE FOR UNKNOWN INDICATION
  8. CRANBERRY SUPPLEMENTS [Concomitant]
     Indication: DRUG USE FOR UNKNOWN INDICATION
  9. ATENOLOL [Concomitant]
     Indication: DRUG USE FOR UNKNOWN INDICATION
  10. ALLEGRA [Concomitant]
     Indication: DRUG USE FOR UNKNOWN INDICATION
  11. FLAXSEED [Concomitant]
     Indication: DRUG USE FOR UNKNOWN INDICATION
  12. MVT [Concomitant]
     Indication: DRUG USE FOR UNKNOWN INDICATION
  13. LORTAB [Concomitant]
     Indication: DRUG USE FOR UNKNOWN INDICATION
  14. PHENERGAN HCL [Concomitant]
     Indication: DRUG USE FOR UNKNOWN INDICATION
  15. MOTRIN [Concomitant]
     Indication: DRUG USE FOR UNKNOWN INDICATION
  16. ZEGERID [Concomitant]
     Indication: DRUG USE FOR UNKNOWN INDICATION
  17. ASPIRIN [Concomitant]
     Indication: DRUG USE FOR UNKNOWN INDICATION

REACTIONS (1)
  - FLUSHING [None]
